FAERS Safety Report 10537199 (Version 2)
Quarter: 2014Q4

REPORT INFORMATION
  Report Type: Spontaneous
  Country: BR (occurrence: BR)
  Receive Date: 20141022
  Receipt Date: 20141216
  Transmission Date: 20150529
  Serious: Yes (Other)
  Sender: FDA-Public Use
  Company Number: BR-BRISTOL-MYERS SQUIBB COMPANY-21495965

PATIENT
  Age: 82 Year
  Sex: Male
  Weight: 70 kg

DRUGS (8)
  1. SELO ZOK [Suspect]
     Active Substance: METOPROLOL SUCCINATE
     Indication: HYPERTENSION
     Dosage: UNK UNK, QD
     Route: 048
  2. LINAGLIPTIN/METFORMIN HYDROCHLORIDE [Concomitant]
     Indication: TYPE 2 DIABETES MELLITUS
     Route: 065
  3. OLMETEC [Concomitant]
     Active Substance: OLMESARTAN MEDOXOMIL
     Indication: HYPERTENSION
     Route: 065
  4. SOMALGIN CARDIO [Concomitant]
     Active Substance: ASPIRIN\DIHYDROXYALUMINUM AMINOACETATE ANHYDROUS\MAGNESIUM CARBONATE
     Indication: HYPERTENSION
     Route: 065
  5. GLUCOPHAGE XR [Suspect]
     Active Substance: METFORMIN HYDROCHLORIDE
     Indication: TYPE 2 DIABETES MELLITUS
     Dosage: UNK UNK, BID
     Route: 048
  6. VASTAREL [Concomitant]
     Active Substance: TRIMETAZIDINE DIHYDROCHLORIDE
     Indication: HYPERTENSION
     Route: 065
  7. DIAMICRON [Concomitant]
     Active Substance: GLICLAZIDE
     Indication: TYPE 2 DIABETES MELLITUS
     Route: 065
  8. TICAGRELOR [Suspect]
     Active Substance: TICAGRELOR
     Indication: ARTERIAL OCCLUSIVE DISEASE
     Dosage: UNK UNK, BID
     Route: 048
     Dates: start: 201408

REACTIONS (5)
  - Skin discolouration [Recovering/Resolving]
  - Blood pressure increased [Recovered/Resolved]
  - Arterial occlusive disease [Not Recovered/Not Resolved]
  - Hyperglycaemia [Recovered/Resolved]
  - Drug ineffective [Unknown]

NARRATIVE: CASE EVENT DATE: 201408
